FAERS Safety Report 9458674 (Version 1)
Quarter: 2013Q3

REPORT INFORMATION
  Report Type: Spontaneous
  Country: US (occurrence: None)
  Receive Date: 20130813
  Receipt Date: 20130813
  Transmission Date: 20140515
  Serious: Yes (Hospitalization)
  Sender: FDA-Public Use
  Company Number: None

PATIENT
  Sex: Female
  Weight: 79.38 kg

DRUGS (1)
  1. SYNTHROID [Suspect]
     Dosage: 2 A DAY
     Dates: start: 1985

REACTIONS (5)
  - Nail disorder [None]
  - Breast enlargement [None]
  - Respiratory disorder [None]
  - Alopecia [None]
  - Product formulation issue [None]
